FAERS Safety Report 6841197-3 (Version None)
Quarter: 2010Q3

REPORT INFORMATION
  Report Type: 
  Country: None (occurrence: None)
  Receive Date: 20100714
  Receipt Date: 20070629
  Transmission Date: 20110219
  Serious: No
  Sender: FDA-Public Use
  Company Number: US-PFIZER INC-2007055285

PATIENT
  Sex: Female
  Weight: 49.9 kg

DRUGS (5)
  1. CHANTIX [Suspect]
     Indication: SMOKING CESSATION THERAPY
     Dates: start: 20070627
  2. PLAQUENIL [Concomitant]
  3. MUCINEX [Concomitant]
  4. CALCIUM [Concomitant]
  5. ADVAIR DISKUS 100/50 [Concomitant]

REACTIONS (4)
  - CHEST DISCOMFORT [None]
  - DYSPNOEA [None]
  - INSOMNIA [None]
  - THROAT IRRITATION [None]
